FAERS Safety Report 7328240-2 (Version None)
Quarter: 2011Q1

REPORT INFORMATION
  Report Type: 
  Country: None (occurrence: None)
  Receive Date: 20110218
  Receipt Date: 20110204
  Transmission Date: 20110831
  Serious: Yes (Hospitalization)
  Sender: FDA-Public Use
  Company Number: 1000018154

PATIENT
  Age: 33 Year
  Sex: Male

DRUGS (2)
  1. EQUANIL [Suspect]
     Dosage: 4000 MG, ONCE, 800 MG (400 MG, 2 IN 1 D),  ORAL
     Route: 048
     Dates: start: 20100226, end: 20100226
  2. ESCITALOPRAM OXALATE [Suspect]
     Dosage: 10 DOSAGE FORMS, ONCE, ORAL
     Route: 048
     Dates: start: 20100226, end: 20100226

REACTIONS (5)
  - MULTIPLE DRUG OVERDOSE INTENTIONAL [None]
  - HYPOTHERMIA [None]
  - HYPOTENSION [None]
  - POISONING DELIBERATE [None]
  - COMA [None]
